FAERS Safety Report 20777844 (Version 1)
Quarter: 2022Q2

REPORT INFORMATION
  Report Type: Spontaneous
  Country: US (occurrence: US)
  Receive Date: 20220503
  Receipt Date: 20220503
  Transmission Date: 20220721
  Serious: No
  Sender: FDA-Public Use
  Company Number: US-drreddys-SPO/USA/22/0149281

PATIENT
  Age: 82 Year
  Sex: Female

DRUGS (2)
  1. OLANZAPINE [Suspect]
     Active Substance: OLANZAPINE
     Indication: Depression
  2. PROZAC [Concomitant]
     Active Substance: FLUOXETINE HYDROCHLORIDE
     Indication: Product used for unknown indication

REACTIONS (8)
  - Amnesia [Unknown]
  - Feeling hot [Unknown]
  - Confusional state [Unknown]
  - Thirst [Unknown]
  - Hyperhidrosis [Unknown]
  - Blood pressure fluctuation [Unknown]
  - Dry mouth [Unknown]
  - Pollakiuria [Unknown]
